FAERS Safety Report 6835696-8 (Version None)
Quarter: 2010Q3

REPORT INFORMATION
  Report Type: 
  Country: None (occurrence: None)
  Receive Date: 20100712
  Receipt Date: 20100712
  Transmission Date: 20110219
  Serious: No
  Sender: FDA-Public Use
  Company Number: None

PATIENT
  Age: 36 Year
  Sex: Female
  Weight: 52.1637 kg

DRUGS (3)
  1. FLONASE [Suspect]
     Indication: HYPERSENSITIVITY
     Dosage: 1 - 2 PUFFS DAILY ONCE A DAY NASAL
     Route: 045
     Dates: start: 20031001, end: 20031220
  2. PULMICORT [Concomitant]
  3. ALLERGY SHOTS [Concomitant]

REACTIONS (4)
  - ANOSMIA [None]
  - ASTHMA [None]
  - NASAL CONGESTION [None]
  - SINUSITIS [None]
